FAERS Safety Report 5124676-9 (Version None)
Quarter: 2006Q4

REPORT INFORMATION
  Report Type: 
  Country: None (occurrence: None)
  Receive Date: 20061011
  Receipt Date: 20060823
  Transmission Date: 20070319
  Serious: Yes (Death)
  Sender: FDA-Public Use
  Company Number: FR-BAYER-200610787BFR

PATIENT
  Age: 68 Year
  Sex: Male
  Weight: 90 kg

DRUGS (14)
  1. GLUCOR [Suspect]
     Indication: UNEVALUABLE EVENT
     Route: 048
  2. DIFFU K [Suspect]
     Indication: UNEVALUABLE EVENT
     Route: 048
  3. TRIATEC [Suspect]
     Indication: UNEVALUABLE EVENT
     Route: 048
  4. PRAVASTATIN [Suspect]
     Indication: UNEVALUABLE EVENT
     Route: 048
  5. VFEND [Concomitant]
     Indication: UNEVALUABLE EVENT
     Dosage: UNIT DOSE: 400 MG
     Route: 048
     Dates: start: 20060721, end: 20060801
  6. TARCEVA [Concomitant]
     Indication: UNEVALUABLE EVENT
     Dosage: UNIT DOSE: 150 MG
     Route: 048
     Dates: start: 20060729, end: 20060730
  7. ISOPTIN [Concomitant]
     Indication: UNEVALUABLE EVENT
     Dosage: TOTAL DAILY DOSE: 360 MG  UNIT DOSE: 120 MG
     Route: 065
  8. ALDACTONE [Concomitant]
     Indication: UNEVALUABLE EVENT
     Dosage: TOTAL DAILY DOSE: 25 MG  UNIT DOSE: 25 MG
     Route: 065
  9. LASIX [Concomitant]
     Indication: UNEVALUABLE EVENT
     Dosage: TOTAL DAILY DOSE: 20 MG  UNIT DOSE: 20 MG
     Route: 065
  10. ALLOPURINOL [Concomitant]
     Indication: UNEVALUABLE EVENT
     Dosage: TOTAL DAILY DOSE: 200 MG  UNIT DOSE: 200 MG
     Route: 065
  11. ADANCOR [Concomitant]
     Indication: UNEVALUABLE EVENT
     Dosage: TOTAL DAILY DOSE: 20 MG  UNIT DOSE: 10 MG
     Route: 065
  12. NITRODERM [Concomitant]
     Indication: UNEVALUABLE EVENT
     Route: 003
  13. BRICANYL [Concomitant]
     Indication: UNEVALUABLE EVENT
     Route: 055
  14. ATROVENT [Concomitant]
     Indication: UNEVALUABLE EVENT
     Route: 055

REACTIONS (3)
  - CARDIO-RESPIRATORY ARREST [None]
  - DIARRHOEA [None]
  - INFARCTION [None]
